FAERS Safety Report 6702584-7 (Version None)
Quarter: 2010Q2

REPORT INFORMATION
  Report Type: 
  Country: None (occurrence: None)
  Receive Date: 20100429
  Receipt Date: 20100422
  Transmission Date: 20101027
  Serious: Yes (Other)
  Sender: FDA-Public Use
  Company Number: US-ELI_LILLY_AND_COMPANY-US201004007278

PATIENT
  Age: 50 Year
  Sex: Female
  Weight: 95.238 kg

DRUGS (1)
  1. HUMATROPE [Suspect]
     Dosage: 0.4 MG, DAILY (1/D)

REACTIONS (6)
  - BACK PAIN [None]
  - DEVICE MISUSE [None]
  - INCORRECT DOSE ADMINISTERED [None]
  - RENAL PAIN [None]
  - STENT PLACEMENT [None]
  - WEIGHT INCREASED [None]
